FAERS Safety Report 9586373 (Version 2)
Quarter: 2013Q4

REPORT INFORMATION
  Report Type: Spontaneous
  Country: US (occurrence: US)
  Receive Date: 20131003
  Receipt Date: 20131003
  Transmission Date: 20140711
  Serious: Yes (Hospitalization, Other)
  Sender: FDA-Public Use
  Company Number: US-RB-058839-13

PATIENT
  Age: 0 None
  Sex: Female

DRUGS (7)
  1. SUBOXONE TABLET [Suspect]
     Indication: DRUG DEPENDENCE
     Route: 064
     Dates: start: 200909
  2. BUPRENORPHINE GENERIC [Suspect]
     Indication: DRUG DEPENDENCE
     Route: 064
     Dates: end: 20100531
  3. SUBUTEX [Suspect]
     Indication: PRODUCT USED FOR UNKNOWN INDICATION
     Dosage: DOSING DETAILS UNKNOWN
     Route: 064
  4. COCAINE [Suspect]
     Indication: DRUG ABUSE
     Dosage: DOSING DETAILS UNKNOWN; PATIENT^S MOTHER TOOK COCAINE ONCE DURING PREGNANCY
     Route: 064
     Dates: start: 201002, end: 201002
  5. HEROIN [Suspect]
     Indication: DRUG ABUSE
     Dosage: DOSING DETAILS UNKNOWN; MOTHER TOOK HEROIN ONCE DURING PREGNANCY
     Route: 064
     Dates: start: 201002, end: 201002
  6. NICOTINE [Suspect]
     Indication: NICOTINE DEPENDENCE
     Dosage: DOSING DETAILS: HALF PACK DAILY (10 CIGARETTES)
     Route: 064
     Dates: start: 200909, end: 20100531
  7. KLONOPIN [Suspect]
     Indication: ANXIETY
     Dosage: DOSING DETAILS: MOTHER WAS TAKING 3-4 MG DAILY
     Route: 064
     Dates: start: 200909, end: 20100531

REACTIONS (3)
  - Foetal exposure during pregnancy [Recovered/Resolved]
  - Low birth weight baby [Recovered/Resolved]
  - Drug withdrawal syndrome neonatal [Recovered/Resolved]
